FAERS Safety Report 4984957-6 (Version None)
Quarter: 2006Q2

REPORT INFORMATION
  Report Type: 
  Country: None (occurrence: None)
  Receive Date: 20060426
  Receipt Date: 20060426
  Transmission Date: 20061013
  Serious: Yes (Other)
  Sender: FDA-Public Use
  Company Number: None

PATIENT
  Sex: Female

DRUGS (11)
  1. BACTRIM DS [Suspect]
     Indication: URINARY TRACT INFECTION
     Dosage: 1 TABLET   BID   ORALLY
     Route: 048
     Dates: start: 20050503, end: 20050509
  2. MULTIPLE VITAMIN [Concomitant]
  3. WELLBUTRIN XL [Concomitant]
  4. TOPROL-XL [Concomitant]
  5. ECOTRIN [Concomitant]
  6. NEXIUM [Concomitant]
  7. LASIX [Concomitant]
  8. GLYBURIDE [Concomitant]
  9. LISINOPRIL [Concomitant]
  10. METOLAZONE [Concomitant]
  11. WARFARIN SODIUM [Concomitant]

REACTIONS (1)
  - HALLUCINATION, VISUAL [None]
